FAERS Safety Report 4950625-X (Version None)
Quarter: 2006Q1

REPORT INFORMATION
  Report Type: 
  Country: None (occurrence: None)
  Receive Date: 20060321
  Receipt Date: 20060321
  Transmission Date: 20060701
  Serious: Yes (Hospitalization)
  Sender: FDA-Public Use
  Company Number: None

PATIENT
  Sex: Male
  Weight: 113.8529 kg

DRUGS (1)
  1. DECADRON [Suspect]
     Indication: PROPHYLACTIC CHEMOTHERAPY
     Dosage: 20MG IVPB  IV
     Route: 042
     Dates: start: 20060131, end: 20060131

REACTIONS (4)
  - ABNORMAL BEHAVIOUR [None]
  - ANGER [None]
  - BELLIGERENCE [None]
  - RESTLESSNESS [None]
